FAERS Safety Report 4320537-3 (Version None)
Quarter: 2004Q1

REPORT INFORMATION
  Report Type: 
  Country: None (occurrence: None)
  Receive Date: 20040315
  Receipt Date: 20031203
  Transmission Date: 20041129
  Serious: Yes (Other)
  Sender: FDA-Public Use
  Company Number: 2003167853US

PATIENT
  Age: 49 Year
  Sex: Male
  Weight: 111.1 kg

DRUGS (1)
  1. BEXTRA [Suspect]
     Dosage: 10 MG, QD, ORAL
     Route: 048
     Dates: start: 20020901, end: 20020901

REACTIONS (2)
  - BRADYCARDIA [None]
  - HYPOTENSION [None]
